FAERS Safety Report 8409492-4 (Version None)
Quarter: 2012Q2

REPORT INFORMATION
  Report Type: 
  Country: None (occurrence: None)
  Receive Date: 20120531
  Receipt Date: 20120531
  Transmission Date: 20120825
  Serious: No
  Sender: FDA-Public Use
  Company Number: None

PATIENT
  Sex: Female

DRUGS (1)
  1. WARFARIN SODIUM [Suspect]
     Indication: THROMBOSIS
     Dosage: 5MG/5DYS/WK.   ; 7 1/2 MG/2 DYS WK
     Dates: start: 20110926

REACTIONS (5)
  - CHILLS [None]
  - GAIT DISTURBANCE [None]
  - SENSORY DISTURBANCE [None]
  - MUSCULOSKELETAL PAIN [None]
  - BACK PAIN [None]
